FAERS Safety Report 4607205-5 (Version None)
Quarter: 2005Q1

REPORT INFORMATION
  Report Type: 
  Country: None (occurrence: None)
  Receive Date: 20050309
  Receipt Date: 20050224
  Transmission Date: 20050727
  Serious: Yes (Other)
  Sender: FDA-Public Use
  Company Number: 2004022999

PATIENT
  Sex: Male
  Weight: 93.8946 kg

DRUGS (5)
  1. NEURONTIN [Suspect]
     Indication: NEUROPATHY PERIPHERAL
  2. VIAGRA [Suspect]
     Indication: ERECTILE DYSFUNCTION
  3. ATORVASTATIN CALCIUM [Concomitant]
  4. NEFAZODONE HCL [Concomitant]
  5. ACETYLSALICYLIC ACID SRT [Concomitant]

REACTIONS (7)
  - DISTURBANCE IN ATTENTION [None]
  - EJACULATION DISORDER [None]
  - ERECTILE DYSFUNCTION [None]
  - LYME DISEASE [None]
  - MEMORY IMPAIRMENT [None]
  - READING DISORDER [None]
  - TRIPLE VESSEL BYPASS GRAFT [None]
